FAERS Safety Report 4881212-X (Version None)
Quarter: 2006Q1

REPORT INFORMATION
  Report Type: 
  Country: None (occurrence: None)
  Receive Date: 20060112
  Receipt Date: 20060104
  Transmission Date: 20060701
  Serious: Yes (Hospitalization)
  Sender: FDA-Public Use
  Company Number: 2006BI000307

PATIENT
  Age: 32 Year
  Sex: Male
  Weight: 49.8957 kg

DRUGS (1)
  1. AVONEX [Suspect]
     Indication: MULTIPLE SCLEROSIS
     Dosage: 30 UG; QW; IM
     Route: 030
     Dates: start: 20050501

REACTIONS (6)
  - BLOOD GLUCOSE INCREASED [None]
  - FEEDING TUBE COMPLICATION [None]
  - INTESTINAL HAEMORRHAGE [None]
  - LOSS OF CONSCIOUSNESS [None]
  - ULCER [None]
  - VOMITING [None]
